FAERS Safety Report 16245669 (Version 1)
Quarter: 2019Q2

REPORT INFORMATION
  Report Type: Spontaneous
  Country: US (occurrence: US)
  Receive Date: 20190426
  Receipt Date: 20190426
  Transmission Date: 20190711
  Serious: No
  Sender: FDA-Public Use
  Company Number: US-FOUNDATIONCONSUMERHC-2019-US-002601

PATIENT
  Age: 24 Year
  Sex: Female
  Weight: 86.18 kg

DRUGS (3)
  1. UNSPECIFIED PROTEIN SUPPLEMENT [Concomitant]
  2. UNSPECIFIED VITAMINS [Concomitant]
     Active Substance: VITAMINS
  3. PLAN B ONE-STEP [Suspect]
     Active Substance: LEVONORGESTREL
     Indication: POST COITAL CONTRACEPTION
     Dosage: 1.5 MG X 1 DOSE
     Route: 048

REACTIONS (1)
  - Vaginal haemorrhage [Recovered/Resolved]
